APPROVED DRUG PRODUCT: MINOCYCLINE HYDROCHLORIDE
Active Ingredient: MINOCYCLINE HYDROCHLORIDE
Strength: EQ 75MG BASE
Dosage Form/Route: TABLET;ORAL
Application: A065131 | Product #002 | TE Code: AB
Applicant: STRIDES PHARMA INTERNATIONAL AG
Approved: Apr 16, 2003 | RLD: No | RS: No | Type: RX